FAERS Safety Report 4907191-4 (Version None)
Quarter: 2006Q1

REPORT INFORMATION
  Report Type: 
  Country: None (occurrence: None)
  Receive Date: 20060207
  Receipt Date: 20060119
  Transmission Date: 20060701
  Serious: Yes (Other)
  Sender: FDA-Public Use
  Company Number: US200601003839

PATIENT
  Age: 88 Year
  Sex: Female
  Weight: 66.2 kg

DRUGS (4)
  1. FORTEO [Suspect]
     Indication: OSTEOPOROSIS
     Dates: start: 20040701
  2. FORTEO PEN (FORTEO PEN) PEN, DISPOSABLE [Concomitant]
  3. ESTROGENS CONJUGATED [Concomitant]
  4. LORTAB [Concomitant]

REACTIONS (4)
  - BONE DENSITY DECREASED [None]
  - DIZZINESS [None]
  - PROCEDURAL COMPLICATION [None]
  - SKIN CANCER [None]
